FAERS Safety Report 10870041 (Version 1)
Quarter: 2015Q1

REPORT INFORMATION
  Report Type: Spontaneous
  Country: US (occurrence: None)
  Receive Date: 20150223
  Receipt Date: 20150223
  Transmission Date: 20150721
  Serious: Yes (Life-Threatening, Hospitalization, Other)
  Sender: FDA-Public Use
  Company Number: ADR-2015-00373

PATIENT
  Age: 14 Year
  Sex: Male

DRUGS (2)
  1. COMPOUNDED BACLOFEN INTRATHECAL 2,000 MCG/ML [Suspect]
     Active Substance: BACLOFEN
     Indication: MUSCLE SPASTICITY
  2. DIAZEPAM. [Suspect]
     Active Substance: DIAZEPAM
     Indication: ANXIETY

REACTIONS (11)
  - Lip discolouration [None]
  - Insomnia [None]
  - Blood pressure decreased [None]
  - Incorrect route of drug administration [None]
  - Respiratory arrest [None]
  - Accidental overdose [None]
  - Unresponsive to stimuli [None]
  - Seizure [None]
  - Mydriasis [None]
  - Device power source issue [None]
  - Irritability [None]

NARRATIVE: CASE EVENT DATE: 20150212
